FAERS Safety Report 22183684 (Version 1)
Quarter: 2023Q2

REPORT INFORMATION
  Report Type: Spontaneous
  Country: US (occurrence: US)
  Receive Date: 20230406
  Receipt Date: 20230406
  Transmission Date: 20230721
  Serious: No
  Sender: FDA-Public Use
  Company Number: US-UPSHER-SMITH LABORATORIES, LLC-2023USL00243

PATIENT
  Age: 74 Year
  Sex: Female

DRUGS (3)
  1. ISOTRETINOIN [Suspect]
     Active Substance: ISOTRETINOIN
     Indication: Skin disorder
     Dosage: UNK
     Dates: start: 20220902
  2. ISOTRETINOIN [Suspect]
     Active Substance: ISOTRETINOIN
     Indication: Skin disorder
     Dosage: UNK
     Dates: start: 20220902
  3. CLARAVIS [Suspect]
     Active Substance: ISOTRETINOIN
     Indication: Skin disorder
     Dosage: UNK
     Dates: start: 20221102

REACTIONS (1)
  - Drug ineffective [Recovered/Resolved]

NARRATIVE: CASE EVENT DATE: 20220902
